FAERS Safety Report 7582015-8 (Version None)
Quarter: 2011Q2

REPORT INFORMATION
  Report Type: 
  Country: None (occurrence: None)
  Receive Date: 20110630
  Receipt Date: 20110622
  Transmission Date: 20111010
  Serious: No
  Sender: FDA-Public Use
  Company Number: US-BIOGENIDEC-2010BI043512

PATIENT
  Age: 58 Year
  Sex: Female

DRUGS (1)
  1. TYSABRI [Suspect]
     Indication: MULTIPLE SCLEROSIS
     Route: 042
     Dates: start: 20081113, end: 20100901

REACTIONS (6)
  - LOSS OF CONTROL OF LEGS [None]
  - COORDINATION ABNORMAL [None]
  - HYPOAESTHESIA [None]
  - FUNGAL INFECTION [None]
  - MUSCULOSKELETAL DISORDER [None]
  - URINARY TRACT INFECTION [None]
